FAERS Safety Report 9280462 (Version 2)
Quarter: 2013Q2

REPORT INFORMATION
  Report Type: Spontaneous
  Country: US (occurrence: US)
  Receive Date: 20130509
  Receipt Date: 20130523
  Transmission Date: 20140414
  Serious: Yes (Hospitalization)
  Sender: FDA-Public Use
  Company Number: US-BAYER-2013-055969

PATIENT
  Age: 40 Year
  Sex: Female
  Weight: 81.63 kg

DRUGS (7)
  1. YAZ [Suspect]
     Indication: MIGRAINE
  2. BEYAZ [Suspect]
  3. EFFEXOR XR [Concomitant]
     Dosage: 75 MG, UNK
  4. KLONOPIN [Concomitant]
     Dosage: 1 MG, UNK
  5. SEROQUEL [Concomitant]
     Dosage: 50 MG, UNK
  6. LAMICTAL [Concomitant]
     Dosage: 150 MG, UNK
  7. TOPAMAX [Concomitant]
     Dosage: 100 MG, UNK

REACTIONS (2)
  - Deep vein thrombosis [Recovered/Resolved]
  - Pulmonary embolism [Recovered/Resolved]
